FAERS Safety Report 5632378-5 (Version None)
Quarter: 2008Q1

REPORT INFORMATION
  Report Type: 
  Country: None (occurrence: None)
  Receive Date: 20080220
  Receipt Date: 20080208
  Transmission Date: 20080703
  Serious: Yes (Other)
  Sender: FDA-Public Use
  Company Number: US-ELI_LILLY_AND_COMPANY-US200802002001

PATIENT
  Age: 62 Year
  Sex: Male

DRUGS (1)
  1. CYMBALTA [Suspect]
     Indication: FIBROMYALGIA
     Dosage: 1 D/F, UNK

REACTIONS (5)
  - CONVULSION [None]
  - DIZZINESS [None]
  - LOSS OF CONSCIOUSNESS [None]
  - MALAISE [None]
  - THINKING ABNORMAL [None]
